FAERS Safety Report 6311934-5 (Version None)
Quarter: 2009Q3

REPORT INFORMATION
  Report Type: 
  Country: None (occurrence: None)
  Receive Date: 20090817
  Receipt Date: 20080714
  Transmission Date: 20100115
  Serious: Yes (Other)
  Sender: FDA-Public Use
  Company Number: US-BRISTOL-MYERS SQUIBB COMPANY-14254155

PATIENT
  Sex: Female

DRUGS (5)
  1. ESTRACE [Suspect]
     Indication: HORMONE REPLACEMENT THERAPY
     Dosage: FROM ON OR ABOUT 13-MAY-1997 TO ON OR ABOUT NOV-1999.
     Dates: start: 19970501, end: 19990101
  2. PREMPRO [Suspect]
     Indication: HORMONE REPLACEMENT THERAPY
     Dosage: FROM ON OR ABOUT OCT-1995 TO ON OR ABOUT 13-MAY-1997
     Dates: start: 19950101, end: 19970501
  3. PROVERA [Suspect]
     Indication: HORMONE REPLACEMENT THERAPY
     Dosage: FROM ON/ABOUT 09MAY1994 TO ON/ABOUT 04AUG1994. FROM ON/ABOUT 13MAY1997 TO ON/ABOUT NOV1999.
     Dates: start: 19970501, end: 19990101
  4. ESTRADERM [Suspect]
     Indication: HORMONE REPLACEMENT THERAPY
     Dosage: FROM ON OR ABOUT 09-MAY-1994 TO ON OR ABOUT 04-AUG-1994
     Dates: start: 19940501, end: 19940801
  5. PREMARIN [Suspect]
     Indication: HORMONE REPLACEMENT THERAPY
     Dosage: FROM ON OR ABOUT 04-AUG-1994 TO ON OR ABOUT OCT-1995
     Dates: start: 19940801, end: 19950101

REACTIONS (1)
  - BREAST CANCER [None]
